FAERS Safety Report 5873275-X (Version None)
Quarter: 2008Q3

REPORT INFORMATION
  Report Type: 
  Country: None (occurrence: None)
  Receive Date: 20080825
  Receipt Date: 20080819
  Transmission Date: 20090109
  Serious: Yes (Death)
  Sender: FDA-Public Use
  Company Number: 200813946

PATIENT
  Age: 59 Year
  Sex: Male
  Weight: 88 kg

DRUGS (25)
  1. SANDOGLOBULIN [Suspect]
     Indication: DERMATOMYOSITIS
     Dosage: NI IV, 12 G ONCE IV, 6 G ONCE IV
     Route: 042
     Dates: start: 20080120, end: 20080120
  2. SANDOGLOBULIN [Suspect]
     Indication: DERMATOMYOSITIS
     Dosage: NI IV, 12 G ONCE IV, 6 G ONCE IV
     Route: 042
     Dates: start: 20080120, end: 20080121
  3. SANDOGLOBULIN [Suspect]
     Indication: DERMATOMYOSITIS
     Dosage: NI IV, 12 G ONCE IV, 6 G ONCE IV
     Route: 042
     Dates: start: 20080121, end: 20080121
  4. SANDOGLOBULIN [Suspect]
     Dosage: NI IV, 48 G DAILY IV, 36 G ONCE IV
     Route: 042
     Dates: start: 20080117, end: 20080119
  5. SANDOGLOBULIN [Suspect]
     Dosage: NI IV, 48 G DAILY IV, 36 G ONCE IV
     Route: 042
     Dates: start: 20080117, end: 20080121
  6. SANDOGLOBULIN [Suspect]
     Dosage: NI IV, 48 G DAILY IV, 36 G ONCE IV
     Route: 042
     Dates: start: 20080120, end: 20080121
  7. MARCUMAR [Concomitant]
  8. GLUCOBAY [Concomitant]
  9. AZATHIOPRIN [Concomitant]
  10. DELIX [Concomitant]
  11. NORVASC [Concomitant]
  12. TOREM [Concomitant]
  13. PANTOZOL [Concomitant]
  14. BELOC ZOK [Concomitant]
  15. CIPRAMIL [Concomitant]
  16. MIRTAZAPINE [Concomitant]
  17. APIDRA [Concomitant]
  18. LANTUS [Concomitant]
  19. VIANI [Concomitant]
  20. BEROTEC [Concomitant]
  21. ATROVENT [Concomitant]
  22. VALORON [Concomitant]
  23. KALINOR [Concomitant]
  24. APIDRA [Concomitant]
  25. VIDISIC [Concomitant]

REACTIONS (17)
  - ACUTE HEPATIC FAILURE [None]
  - BILIARY DILATATION [None]
  - BILIARY TRACT DISORDER [None]
  - CHOLESTASIS [None]
  - HEPATIC CONGESTION [None]
  - HEPATIC FIBROSIS [None]
  - HEPATIC NECROSIS [None]
  - HEPATIC STEATOSIS [None]
  - HEPATITIS [None]
  - HERPES SIMPLEX [None]
  - HYPOKALAEMIA [None]
  - INTERNATIONAL NORMALISED RATIO DECREASED [None]
  - LIVER INJURY [None]
  - METABOLIC SYNDROME [None]
  - MULTI-ORGAN FAILURE [None]
  - PAIN [None]
  - REFUSAL OF TREATMENT BY RELATIVE [None]
